FAERS Safety Report 12406831 (Version 2)
Quarter: 2016Q2

REPORT INFORMATION
  Report Type: Report from Study
  Country: US (occurrence: US)
  Receive Date: 20160526
  Receipt Date: 20160606
  Transmission Date: 20160815
  Serious: Yes (Hospitalization, Other)
  Sender: FDA-Public Use
  Company Number: US-SA-2013SA117532

PATIENT
  Age: 48 Year
  Sex: Female

DRUGS (2)
  1. AVONEX [Concomitant]
     Active Substance: INTERFERON BETA-1A
     Dates: start: 2015
  2. AUBAGIO [Suspect]
     Active Substance: TERIFLUNOMIDE
     Indication: MULTIPLE SCLEROSIS
     Route: 048
     Dates: start: 20120101, end: 20120104

REACTIONS (16)
  - Dizziness [Unknown]
  - Hypokinesia [Recovered/Resolved]
  - Yellow skin [Recovered/Resolved]
  - Vein disorder [Not Recovered/Not Resolved]
  - Unevaluable event [Unknown]
  - Muscle twitching [Unknown]
  - Speech disorder [Recovered/Resolved]
  - Impaired driving ability [Unknown]
  - Drug hypersensitivity [Recovering/Resolving]
  - Mobility decreased [Recovering/Resolving]
  - Memory impairment [Not Recovered/Not Resolved]
  - Confusional state [Recovering/Resolving]
  - Abasia [Recovered/Resolved]
  - Bedridden [Recovering/Resolving]
  - Multiple sclerosis relapse [Unknown]
  - Feeling abnormal [Unknown]

NARRATIVE: CASE EVENT DATE: 2012
